FAERS Safety Report 9255318 (Version 1)
Quarter: 2013Q1

REPORT INFORMATION
  Report Type: Spontaneous
  Country: US (occurrence: None)
  Receive Date: 20121212
  Receipt Date: 20121212
  Transmission Date: 20140127
  Serious: No
  Sender: FDA-Public Use
  Company Number: 1208USA012223

PATIENT
  Age: 48 Year
  Sex: Female

DRUGS (3)
  1. PEG-INTRON [Suspect]
     Indication: HEPATITIS C
     Dates: start: 20120731
  2. VICTRELIS [Suspect]
     Dates: start: 20120828
  3. REBETOL [Suspect]
     Dates: start: 20120731

REACTIONS (1)
  - Decreased appetite [None]
